FAERS Safety Report 11682253 (Version 1)
Quarter: 2015Q4

REPORT INFORMATION
  Report Type: Spontaneous
  Country: US (occurrence: None)
  Receive Date: 20151028
  Receipt Date: 20151028
  Transmission Date: 20160304
  Serious: Yes (Death)
  Sender: FDA-Public Use
  Company Number: None

PATIENT
  Age: 77 Year
  Sex: Female

DRUGS (12)
  1. KCL [Concomitant]
     Active Substance: POTASSIUM CHLORIDE
  2. ETHACYNIC ACID [Concomitant]
  3. TIOPROPIUM [Concomitant]
  4. ALENDRONATE [Concomitant]
     Active Substance: ALENDRONATE SODIUM
  5. TRACLEER [Suspect]
     Active Substance: BOSENTAN
     Indication: HEART DISEASE CONGENITAL
     Route: 048
     Dates: start: 201412, end: 201510
  6. NPH INSULIN [Concomitant]
     Active Substance: INSULIN BEEF
  7. FLUTICASONE/SALMETEROL [Concomitant]
     Active Substance: FLUTICASONE PROPIONATE\SALMETEROL XINAFOATE
  8. ASA [Concomitant]
     Active Substance: ASPIRIN
  9. PANTOPRAZOLE [Concomitant]
     Active Substance: PANTOPRAZOLE SODIUM
  10. INSULIN REGULAR [Concomitant]
     Active Substance: INSULIN NOS
  11. LOSARTAN. [Concomitant]
     Active Substance: LOSARTAN
  12. BUMETANIDE. [Concomitant]
     Active Substance: BUMETANIDE

REACTIONS (5)
  - Diarrhoea [None]
  - Lactic acidosis [None]
  - Unresponsive to stimuli [None]
  - Abdominal pain [None]
  - Ascites [None]

NARRATIVE: CASE EVENT DATE: 20151021
